FAERS Safety Report 9738929 (Version 2)
Quarter: 2014Q1

REPORT INFORMATION
  Report Type: Spontaneous
  Country: CL (occurrence: CL)
  Receive Date: 20131209
  Receipt Date: 20140110
  Transmission Date: 20141002
  Serious: Yes (Life-Threatening, Hospitalization, Other)
  Sender: FDA-Public Use
  Company Number: CL-BAYER-2013-147217

PATIENT
  Age: 27 Year
  Sex: Female

DRUGS (4)
  1. YASMIN [Suspect]
     Indication: CONTRACEPTION
     Dosage: UNK
     Route: 048
     Dates: start: 2006, end: 20110517
  2. SILDENAFIL [Concomitant]
     Indication: PULMONARY HYPERTENSION
     Dosage: 50 MG, UNK
     Route: 048
  3. ESPIRONOLACTONA [Concomitant]
     Dosage: 25 MG, UNK
  4. ACENOCUMAROL [Concomitant]

REACTIONS (5)
  - Pregnancy on oral contraceptive [Recovered/Resolved]
  - Drug ineffective [None]
  - Gestational hypertension [Recovered/Resolved]
  - Coma [Recovered/Resolved]
  - Premature delivery [None]
